FAERS Safety Report 15406445 (Version 1)
Quarter: 2018Q3

REPORT INFORMATION
  Report Type: Spontaneous
  Country: US (occurrence: US)
  Receive Date: 20180912
  Receipt Date: 20180912
  Transmission Date: 20181010
  Serious: No
  Sender: FDA-Public Use
  Company Number: None

PATIENT
  Age: 74 Year
  Sex: Female

DRUGS (1)
  1. TAFINLAR [Suspect]
     Active Substance: DABRAFENIB MESYLATE
     Dates: start: 20180830

REACTIONS (7)
  - Pyrexia [None]
  - Nausea [None]
  - Vomiting [None]
  - Chills [None]
  - Cough [None]
  - Fatigue [None]
  - Decreased appetite [None]

NARRATIVE: CASE EVENT DATE: 20180903
